FAERS Safety Report 14856913 (Version 1)
Quarter: 2018Q2

REPORT INFORMATION
  Report Type: Spontaneous
  Country: US (occurrence: US)
  Receive Date: 20180507
  Receipt Date: 20180507
  Transmission Date: 20180711
  Serious: No
  Sender: FDA-Public Use
  Company Number: US-ROCHE-2026011

PATIENT
  Age: 75 Year
  Sex: Male

DRUGS (13)
  1. METFORMIN HYDROCHLORIDE. [Concomitant]
     Active Substance: METFORMIN HYDROCHLORIDE
     Route: 065
  2. LOVASTATIN. [Concomitant]
     Active Substance: LOVASTATIN
  3. CLOPIDOGREL BISULFATE. [Concomitant]
     Active Substance: CLOPIDOGREL BISULFATE
  4. FOLIC ACID. [Concomitant]
     Active Substance: FOLIC ACID
  5. GLIPIZIDE. [Concomitant]
     Active Substance: GLIPIZIDE
  6. DIPHENHYDRAMINE HCL [Concomitant]
     Active Substance: DIPHENHYDRAMINE HYDROCHLORIDE
  7. ESBRIET [Suspect]
     Active Substance: PIRFENIDONE
     Indication: PULMONARY FIBROSIS
     Dosage: DAILY
     Route: 048
     Dates: start: 20151215
  8. LATANOPROST. [Concomitant]
     Active Substance: LATANOPROST
  9. GABAPENTIN. [Concomitant]
     Active Substance: GABAPENTIN
  10. ASPIRIN. [Concomitant]
     Active Substance: ASPIRIN
  11. PRAVASTATIN SODIUM. [Concomitant]
     Active Substance: PRAVASTATIN SODIUM
  12. MELATONIN [Concomitant]
     Active Substance: MELATONIN
  13. DOXAZOSIN MESYLATE. [Concomitant]
     Active Substance: DOXAZOSIN MESYLATE

REACTIONS (2)
  - No adverse event [Unknown]
  - Drug ineffective [Unknown]

NARRATIVE: CASE EVENT DATE: 20171019
